FAERS Safety Report 7092517-9 (Version None)
Quarter: 2010Q4

REPORT INFORMATION
  Report Type: 
  Country: None (occurrence: None)
  Receive Date: 20101110
  Receipt Date: 20101101
  Transmission Date: 20110411
  Serious: Yes (Other)
  Sender: FDA-Public Use
  Company Number: US-US-EMD SERONO, INC.-230108J09USA

PATIENT
  Sex: Male
  Weight: 91 kg

DRUGS (3)
  1. REBIF [Suspect]
     Indication: MULTIPLE SCLEROSIS
     Route: 058
     Dates: start: 20080930
  2. VITAMIN B [Concomitant]
     Indication: MULTIPLE SCLEROSIS
     Route: 065
  3. IBUPROFEN [Concomitant]
     Indication: PREMEDICATION
     Route: 065

REACTIONS (3)
  - ARTHRALGIA [None]
  - BASEDOW'S DISEASE [None]
  - PYREXIA [None]
